FAERS Safety Report 25329554 (Version 2)
Quarter: 2025Q3

REPORT INFORMATION
  Report Type: Spontaneous
  Country: GB (occurrence: GB)
  Receive Date: 20250519
  Receipt Date: 20250802
  Transmission Date: 20251020
  Serious: Yes (Hospitalization, Other)
  Sender: ALEXION PHARMACEUTICALS
  Company Number: GB-MHRA-MIDB-ac37c7a8-5f35-4805-a7fc-2d9202b47c61

PATIENT
  Age: 54 Year
  Sex: Female

DRUGS (11)
  1. TEZSPIRE [Suspect]
     Active Substance: TEZEPELUMAB-EKKO
     Route: 065
  2. TEZSPIRE [Suspect]
     Active Substance: TEZEPELUMAB-EKKO
  3. NORTRIPTYLINE [Concomitant]
     Active Substance: NORTRIPTYLINE
  4. ESTRADIOL [Concomitant]
     Active Substance: ESTRADIOL
  5. ALBUTEROL [Concomitant]
     Active Substance: ALBUTEROL
  6. PREGABALIN [Concomitant]
     Active Substance: PREGABALIN
  7. LANSOPRAZOLE [Concomitant]
     Active Substance: LANSOPRAZOLE
  8. SERTRALINE [Concomitant]
     Active Substance: SERTRALINE HYDROCHLORIDE
  9. DICLOFENAC SODIUM [Concomitant]
     Active Substance: DICLOFENAC SODIUM
  10. BETAMETHASONE VALERATE\FUSIDIC ACID [Concomitant]
     Active Substance: BETAMETHASONE VALERATE\FUSIDIC ACID
  11. BECLOMETHASONE\FORMOTEROL [Concomitant]
     Active Substance: BECLOMETHASONE\FORMOTEROL

REACTIONS (4)
  - Arthralgia [Recovered/Resolved]
  - Joint swelling [Unknown]
  - Eye swelling [Unknown]
  - Headache [Recovered/Resolved]
